FAERS Safety Report 4548455-6 (Version None)
Quarter: 2005Q1

REPORT INFORMATION
  Report Type: 
  Country: None (occurrence: None)
  Receive Date: 20050110
  Receipt Date: 20021113
  Transmission Date: 20050727
  Serious: Yes (Other)
  Sender: FDA-Public Use
  Company Number: US-GLAXOSMITHKLINE-A0386384A

PATIENT
  Age: 42 Year
  Sex: Male
  Weight: 70.5 kg

DRUGS (8)
  1. LAMICTAL [Suspect]
     Indication: BIPOLAR DISORDER
     Route: 048
  2. GABITRIL [Suspect]
     Indication: BIPOLAR DISORDER
     Dosage: 2MG FOUR TIMES PER DAY
     Route: 048
     Dates: start: 20020701, end: 20020904
  3. NEURONTIN [Suspect]
     Indication: BIPOLAR DISORDER
     Route: 048
     Dates: end: 20020908
  4. LITHIUM [Concomitant]
  5. SONATA [Concomitant]
  6. CLARITIN [Concomitant]
  7. MULTI-VITAMINS [Concomitant]
  8. COLACE [Concomitant]

REACTIONS (4)
  - AGRANULOCYTOSIS [None]
  - BRADYCARDIA [None]
  - HYPOTENSION [None]
  - THROMBOCYTOPENIA [None]
